FAERS Safety Report 14567351 (Version 1)
Quarter: 2018Q1

REPORT INFORMATION
  Report Type: Spontaneous
  Country: CA (occurrence: CA)
  Receive Date: 20180223
  Receipt Date: 20180223
  Transmission Date: 20180509
  Serious: Yes (Hospitalization, Other)
  Sender: FDA-Public Use
  Company Number: CA-AUROBINDO-AUR-APL-2018-008566

PATIENT
  Age: 9 Month
  Sex: Female

DRUGS (2)
  1. CEFTRIAXONE. [Suspect]
     Active Substance: CEFTRIAXONE
     Indication: ESCHERICHIA INFECTION
     Dosage: SINGLE DOSE ; IN TOTAL
     Route: 042
  2. AMOXICILLIN+CLAVULANIC ACID [Suspect]
     Active Substance: AMOXICILLIN\CLAVULANIC ACID
     Indication: ESCHERICHIA INFECTION
     Dosage: ()

REACTIONS (5)
  - Haemorrhage [Unknown]
  - Prothrombin time prolonged [Recovering/Resolving]
  - Epistaxis [Recovering/Resolving]
  - Coagulopathy [Recovering/Resolving]
  - Activated partial thromboplastin time prolonged [Recovering/Resolving]
